FAERS Safety Report 19998222 (Version 2)
Quarter: 2021Q4

REPORT INFORMATION
  Report Type: Spontaneous
  Country: GB (occurrence: GB)
  Receive Date: 20211026
  Receipt Date: 20211121
  Transmission Date: 20220303
  Serious: Yes (Other)
  Sender: FDA-Public Use
  Company Number: GB-AUROBINDO-AUR-APL-2017-30099

PATIENT
  Sex: Female

DRUGS (2)
  1. FLECAINIDE [Suspect]
     Active Substance: FLECAINIDE
     Indication: Tachycardia foetal
     Dosage: 100 MILLIGRAM, FOUR TIMES/DAY
     Route: 048
  2. METOPROLOL [Suspect]
     Active Substance: METOPROLOL
     Indication: Tachycardia foetal
     Dosage: 50 MILLIGRAM, 3 TIMES A DAY
     Route: 048

REACTIONS (4)
  - Electrocardiogram QT prolonged [Recovering/Resolving]
  - Electrocardiogram PR prolongation [Recovering/Resolving]
  - Exposure during pregnancy [Recovering/Resolving]
  - Drug level increased [Recovering/Resolving]
